FAERS Safety Report 21914993 (Version 1)
Quarter: 2023Q1

REPORT INFORMATION
  Report Type: Spontaneous
  Country: US (occurrence: US)
  Receive Date: 20230126
  Receipt Date: 20230126
  Transmission Date: 20230417
  Serious: No
  Sender: FDA-Public Use
  Company Number: US-CATALYST PHARMACEUTICALS, INC-2022CAT00528

PATIENT
  Sex: Female

DRUGS (12)
  1. FIRDAPSE [Suspect]
     Active Substance: AMIFAMPRIDINE PHOSPHATE
     Indication: Myasthenic syndrome
     Dosage: 20 MG, 4X/DAY
     Route: 048
     Dates: start: 20210604
  2. FIRDAPSE [Suspect]
     Active Substance: AMIFAMPRIDINE PHOSPHATE
     Dosage: 90 MG DAILY
     Route: 048
  3. AMLODIPINE [Concomitant]
     Active Substance: AMLODIPINE BESYLATE
     Dosage: 5 MG, 1X/DAY
  4. CARAFATE [Concomitant]
     Active Substance: SUCRALFATE
     Dosage: 1 G, EVERY 6 HOURS
  5. CEFUROXIME [Concomitant]
     Active Substance: CEFUROXIME
     Dosage: 500 MG, 3X/DAY
  6. FLAGYL [Concomitant]
     Active Substance: METRONIDAZOLE\METRONIDAZOLE HYDROCHLORIDE
     Dosage: 500 MG, 2X/DAY
  7. HYDROMORPHONE [Concomitant]
     Active Substance: HYDROMORPHONE
     Dosage: 4 MG, AS NEEDED
  8. PREDNISONE [Concomitant]
     Active Substance: PREDNISONE
     Dosage: 3 MG, 1X/DAY
  9. PROTONIX [Concomitant]
     Active Substance: PANTOPRAZOLE SODIUM
     Dosage: 40 MG, 1X/DAY
  10. RAMIPRIL [Concomitant]
     Active Substance: RAMIPRIL
     Dosage: 5 MG, 1X/DAY
  11. WELLBUTRIN XL [Concomitant]
     Active Substance: BUPROPION HYDROCHLORIDE
     Dosage: 450 MG, 1X/DAY
  12. ZOFRAN [Concomitant]
     Active Substance: ONDANSETRON HYDROCHLORIDE
     Dosage: 4 MG, AS NEEDED

REACTIONS (1)
  - Off label use [Not Recovered/Not Resolved]
